FAERS Safety Report 4576747-3 (Version None)
Quarter: 2005Q1

REPORT INFORMATION
  Report Type: 
  Country: None (occurrence: None)
  Receive Date: 20050210
  Receipt Date: 20050207
  Transmission Date: 20050727
  Serious: Yes (Hospitalization)
  Sender: FDA-Public Use
  Company Number: PHBS2005FR02020

PATIENT
  Age: 26 Year
  Sex: Female

DRUGS (1)
  1. BROMOCRIPTINE MESYLATE [Suspect]
     Indication: SUPPRESSED LACTATION
     Dosage: 5 MG/DAY

REACTIONS (12)
  - ANGIOPATHY [None]
  - BLOOD CREATININE INCREASED [None]
  - BLOOD UREA INCREASED [None]
  - BLOOD URIC ACID INCREASED [None]
  - CEREBROVASCULAR DISORDER [None]
  - CONVULSION [None]
  - HEADACHE [None]
  - HYPERTENSION [None]
  - PROTEINURIA [None]
  - RENAL FAILURE ACUTE [None]
  - VASCULITIS CEREBRAL [None]
  - VOMITING [None]
